FAERS Safety Report 10475170 (Version 1)
Quarter: 2014Q3

REPORT INFORMATION
  Report Type: Spontaneous
  Country: US (occurrence: None)
  Receive Date: 20140924
  Receipt Date: 20140924
  Transmission Date: 20150326
  Serious: Yes (Hospitalization)
  Sender: FDA-Public Use
  Company Number: None

PATIENT
  Age: 38 Year
  Sex: Male

DRUGS (7)
  1. COUMADIN [Suspect]
     Active Substance: WARFARIN SODIUM
     Indication: ATRIAL FIBRILLATION
     Dosage: 6MG, MWF, PO?
     Route: 048
  2. FUROSEMIDE. [Concomitant]
     Active Substance: FUROSEMIDE
  3. TIKOSYN [Concomitant]
     Active Substance: DOFETILIDE
  4. METOPROLOL SUCCINATE. [Concomitant]
     Active Substance: METOPROLOL SUCCINATE
  5. ASA [Suspect]
     Active Substance: ASPIRIN
     Indication: HEART DISEASE CONGENITAL
     Route: 048
  6. ENALAPRIL [Concomitant]
     Active Substance: ENALAPRIL
  7. MAG OX [Concomitant]
     Active Substance: MAGNESIUM OXIDE

REACTIONS (15)
  - Epistaxis [None]
  - Transaminases increased [None]
  - Haemoptysis [None]
  - Tachypnoea [None]
  - Arthralgia [None]
  - Leukocytosis [None]
  - Hypotension [None]
  - Sepsis [None]
  - Pyrexia [None]
  - Rectal haemorrhage [None]
  - International normalised ratio increased [None]
  - Pneumonia [None]
  - Hypophagia [None]
  - Coagulopathy [None]
  - Hypoxia [None]

NARRATIVE: CASE EVENT DATE: 20140409
